FAERS Safety Report 24203617 (Version 2)
Quarter: 2024Q3

REPORT INFORMATION
  Report Type: Spontaneous
  Country: US (occurrence: US)
  Receive Date: 20240813
  Receipt Date: 20240825
  Transmission Date: 20241017
  Serious: Yes (Life-Threatening, Hospitalization, Other)
  Sender: ALKEM
  Company Number: None

PATIENT
  Age: 62 Year
  Sex: Female

DRUGS (1)
  1. GABAPENTIN [Suspect]
     Active Substance: GABAPENTIN
     Indication: Muscle spasms
     Dosage: 100 MILLIGRAM, BID (SINGLE DOSE) (1 TOTAL)
     Route: 065

REACTIONS (5)
  - Toxicity to various agents [Recovering/Resolving]
  - Altered state of consciousness [Recovered/Resolved]
  - Nervous system disorder [Recovered/Resolved]
  - Mental status changes [Recovered/Resolved]
  - Myoclonus [Recovered/Resolved]
